FAERS Safety Report 17461676 (Version 2)
Quarter: 2020Q1

REPORT INFORMATION
  Report Type: Spontaneous
  Country: US (occurrence: US)
  Receive Date: 20200226
  Receipt Date: 20200226
  Transmission Date: 20200409
  Serious: Yes (Death, Hospitalization)
  Sender: FDA-Public Use
  Company Number: US-PFIZER INC-2020077284

PATIENT
  Age: 14 Year
  Sex: Female

DRUGS (5)
  1. CALCIUM [Suspect]
     Active Substance: CALCIUM
     Indication: SINUS TACHYCARDIA
     Dosage: UNK
     Route: 065
  2. SODIUM BICARBONATE. [Suspect]
     Active Substance: SODIUM BICARBONATE
     Indication: BUNDLE BRANCH BLOCK RIGHT
     Dosage: UNK
     Route: 065
  3. CALCIUM [Suspect]
     Active Substance: CALCIUM
     Indication: BUNDLE BRANCH BLOCK RIGHT
  4. EPINEPHRINE. [Suspect]
     Active Substance: EPINEPHRINE
     Indication: HYPOTENSION
     Dosage: UNK
     Route: 065
  5. SODIUM BICARBONATE. [Suspect]
     Active Substance: SODIUM BICARBONATE
     Indication: SINUS TACHYCARDIA

REACTIONS (1)
  - Drug ineffective [Fatal]
